FAERS Safety Report 18486774 (Version 1)
Quarter: 2020Q4

REPORT INFORMATION
  Report Type: Spontaneous
  Country: US (occurrence: US)
  Receive Date: 20201110
  Receipt Date: 20201110
  Transmission Date: 20210114
  Serious: Yes (Hospitalization, Other)
  Sender: FDA-Public Use
  Company Number: US-SA-2020SA306942

PATIENT

DRUGS (1)
  1. AFLIBERCEPT [Suspect]
     Active Substance: AFLIBERCEPT
     Indication: MACULAR DEGENERATION
     Dosage: INJECTION
     Route: 031

REACTIONS (16)
  - Vision blurred [Unknown]
  - Anterior chamber cell [Unknown]
  - Hypopyon [Recovering/Resolving]
  - Corneal oedema [Unknown]
  - Retinal perivascular sheathing [Unknown]
  - Retinal vasculitis [Unknown]
  - Papilloedema [Unknown]
  - Ocular hypertension [Recovering/Resolving]
  - Intraocular pressure increased [Recovering/Resolving]
  - Vitreous disorder [Unknown]
  - Vitritis [Unknown]
  - Retinal haemorrhage [Unknown]
  - Visual acuity reduced [Unknown]
  - Corneal deposits [Unknown]
  - Endophthalmitis [Unknown]
  - Vitreous floaters [Unknown]
